FAERS Safety Report 7104507-8 (Version None)
Quarter: 2010Q4

REPORT INFORMATION
  Report Type: 
  Country: None (occurrence: None)
  Receive Date: 20101116
  Receipt Date: 20101108
  Transmission Date: 20110411
  Serious: No
  Sender: FDA-Public Use
  Company Number: US-BIOGENIDEC-2010BI039467

PATIENT
  Age: 33 Year
  Sex: Female

DRUGS (2)
  1. TYSABRI [Suspect]
     Indication: MULTIPLE SCLEROSIS
     Route: 042
     Dates: start: 20081201, end: 20100701
  2. TYSABRI [Suspect]
     Route: 042
     Dates: start: 20100801

REACTIONS (2)
  - HYPOAESTHESIA [None]
  - INFLUENZA LIKE ILLNESS [None]
